FAERS Safety Report 8592099-6 (Version None)
Quarter: 2012Q3

REPORT INFORMATION
  Report Type: 
  Country: None (occurrence: None)
  Receive Date: 20120814
  Receipt Date: 20120731
  Transmission Date: 20120928
  Serious: Yes (Hospitalization, Disabling)
  Sender: FDA-Public Use
  Company Number: AU-MYLANLABS-2012S1015853

PATIENT
  Age: 82 Year
  Sex: Male

DRUGS (6)
  1. GENTAMICIN [Suspect]
     Indication: DEVICE RELATED INFECTION
     Route: 065
  2. METRONIDAZOLE [Suspect]
     Indication: DEVICE RELATED INFECTION
     Route: 065
  3. WARFARIN SODIUM [Concomitant]
     Indication: CARDIAC DISORDER
     Route: 065
  4. VANCOMYCIN [Suspect]
     Indication: DEVICE RELATED INFECTION
     Route: 065
  5. VANCOMYCIN [Suspect]
     Indication: ANTIBIOTIC PROPHYLAXIS
     Route: 065
  6. TIMENTIN [Suspect]
     Indication: DEVICE RELATED INFECTION
     Route: 065

REACTIONS (3)
  - STAPHYLOCOCCAL INFECTION [None]
  - TREATMENT FAILURE [None]
  - BACTERAEMIA [None]
